FAERS Safety Report 20623220 (Version 3)
Quarter: 2022Q2

REPORT INFORMATION
  Report Type: Report from Study
  Country: US (occurrence: US)
  Receive Date: 20220322
  Receipt Date: 20220613
  Transmission Date: 20220721
  Serious: Yes (Hospitalization, Other)
  Sender: FDA-Public Use
  Company Number: US-NOVARTISPH-NVSC2022US064235

PATIENT
  Sex: Female

DRUGS (1)
  1. KESIMPTA [Suspect]
     Active Substance: OFATUMUMAB
     Indication: Multiple sclerosis
     Dosage: 20 MG
     Route: 058
     Dates: start: 20211023

REACTIONS (8)
  - Fall [Unknown]
  - Lower limb fracture [Unknown]
  - Bone contusion [Unknown]
  - Psoriatic arthropathy [Unknown]
  - Eczema [Unknown]
  - Arthropathy [Unknown]
  - Pain in extremity [Unknown]
  - Dyskinesia [Unknown]
